FAERS Safety Report 7068328-7 (Version None)
Quarter: 2010Q4

REPORT INFORMATION
  Report Type: 
  Country: None (occurrence: None)
  Receive Date: 20101028
  Receipt Date: 20101025
  Transmission Date: 20110411
  Serious: Yes (Hospitalization)
  Sender: FDA-Public Use
  Company Number: A0878160A

PATIENT
  Age: 35 Year
  Sex: Female
  Weight: 87.7 kg

DRUGS (2)
  1. LAPATINIB [Suspect]
     Indication: NEOPLASM
     Dosage: 1250MG PER DAY
     Route: 048
     Dates: start: 20100810
  2. CAPECITABINE [Suspect]
     Indication: NEOPLASM
     Route: 048
     Dates: start: 20100810

REACTIONS (1)
  - INFECTION [None]
